FAERS Safety Report 11394222 (Version 1)
Quarter: 2015Q3

REPORT INFORMATION
  Report Type: Spontaneous
  Country: US (occurrence: None)
  Receive Date: 20150817
  Receipt Date: 20150817
  Transmission Date: 20151125
  Serious: Yes (Hospitalization, Disabling)
  Sender: FDA-Public Use
  Company Number: None

PATIENT
  Age: 56 Day
  Sex: Female
  Weight: 99.79 kg

DRUGS (3)
  1. BC [Concomitant]
     Active Substance: ASPIRIN\CAFFEINE
  2. LEVAQUIN [Suspect]
     Active Substance: LEVOFLOXACIN
     Indication: PNEUMONIA
  3. CLARITIN-D 12 HOUR [Concomitant]
     Active Substance: LORATADINE\PSEUDOEPHEDRINE SULFATE

REACTIONS (7)
  - Fear [None]
  - Asthenia [None]
  - Chest pain [None]
  - Pericarditis [None]
  - Malaise [None]
  - Tachycardia [None]
  - Cardiac disorder [None]

NARRATIVE: CASE EVENT DATE: 20131217
